FAERS Safety Report 23190481 (Version 1)
Quarter: 2023Q4

REPORT INFORMATION
  Report Type: Report from Study
  Country: US (occurrence: US)
  Receive Date: 20231116
  Receipt Date: 20231116
  Transmission Date: 20240110
  Serious: No
  Sender: FDA-Public Use
  Company Number: US-AstraZeneca-CH-00507983A

PATIENT
  Sex: Female

DRUGS (1)
  1. SOLIRIS [Suspect]
     Active Substance: ECULIZUMAB
     Indication: Atypical haemolytic uraemic syndrome
     Dosage: UNK, Q2W
     Route: 041
     Dates: start: 20160822

REACTIONS (2)
  - Exposure during pregnancy [Unknown]
  - International normalised ratio abnormal [Unknown]
